FAERS Safety Report 20808984 (Version 1)
Quarter: 2022Q2

REPORT INFORMATION
  Report Type: Spontaneous
  Country: JO (occurrence: None)
  Receive Date: 20220509
  Receipt Date: 20220509
  Transmission Date: 20220721
  Serious: Yes (Disabling)
  Sender: FDA-Public Use
  Company Number: None

PATIENT
  Age: 26 Year
  Sex: Female
  Weight: 62 kg

DRUGS (1)
  1. ISOTRETINOIN [Suspect]
     Active Substance: ISOTRETINOIN
     Indication: Acne
     Dosage: OTHER QUANTITY : 11 CAPSULE(S);?FREQUENCY : DAILY;?
     Route: 048

REACTIONS (4)
  - Vulvovaginal dryness [None]
  - Fear [None]
  - Feeling abnormal [None]
  - Acne [None]

NARRATIVE: CASE EVENT DATE: 20210211
